FAERS Safety Report 19084451 (Version 1)
Quarter: 2021Q2

REPORT INFORMATION
  Report Type: Spontaneous
  Country: US (occurrence: US)
  Receive Date: 20210401
  Receipt Date: 20210401
  Transmission Date: 20210717
  Serious: Yes (Other)
  Sender: FDA-Public Use
  Company Number: US-PURDUE-USA-2020-0171460

PATIENT
  Sex: Male

DRUGS (1)
  1. OXYCONTIN [Suspect]
     Active Substance: OXYCODONE HYDROCHLORIDE
     Indication: PAIN
     Dosage: 60 MG, QD PRN
     Route: 048
     Dates: start: 20080226

REACTIONS (8)
  - Bipolar disorder [Unknown]
  - Anxiety [Unknown]
  - Anger [Unknown]
  - Hyperaesthesia [Unknown]
  - Agitation [Unknown]
  - Drug withdrawal syndrome [Unknown]
  - Insomnia [Unknown]
  - Mood swings [Unknown]
